FAERS Safety Report 6275183-1 (Version None)
Quarter: 2009Q3

REPORT INFORMATION
  Report Type: 
  Country: None (occurrence: None)
  Receive Date: 20090721
  Receipt Date: 20090713
  Transmission Date: 20100115
  Serious: Yes (Hospitalization)
  Sender: FDA-Public Use
  Company Number: DE-BAYER-200925478GPV

PATIENT
  Age: 42 Year
  Sex: Female
  Weight: 67 kg

DRUGS (2)
  1. MIRENA [Suspect]
     Indication: CONTRACEPTION
     Route: 015
     Dates: start: 19980101
  2. MIRENA [Suspect]
     Route: 015
     Dates: start: 20040308

REACTIONS (4)
  - ARTERY DISSECTION [None]
  - CAROTID ARTERY OCCLUSION [None]
  - ISCHAEMIC STROKE [None]
  - SPEECH DISORDER [None]
